FAERS Safety Report 10640904 (Version 1)
Quarter: 2014Q4

REPORT INFORMATION
  Report Type: Spontaneous
  Country: US (occurrence: None)
  Receive Date: 20141208
  Receipt Date: 20141208
  Transmission Date: 20150529
  Serious: Yes (Other)
  Sender: FDA-Public Use
  Company Number: None

PATIENT
  Age: 23 Year
  Sex: Female
  Weight: 47.63 kg

DRUGS (1)
  1. NEXPLANON [Suspect]
     Active Substance: ETONOGESTREL
     Dates: start: 20140212, end: 20140522

REACTIONS (5)
  - Mood swings [None]
  - Syncope [None]
  - Dizziness [None]
  - Nausea [None]
  - Anxiety [None]

NARRATIVE: CASE EVENT DATE: 20140618
